FAERS Safety Report 4779668-6 (Version None)
Quarter: 2005Q3

REPORT INFORMATION
  Report Type: 
  Country: None (occurrence: None)
  Receive Date: 20050914
  Receipt Date: 20050309
  Transmission Date: 20060218
  Serious: Yes (Hospitalization)
  Sender: FDA-Public Use
  Company Number: 163-20785-05030237

PATIENT
  Age: 68 Year
  Sex: Male
  Weight: 70 kg

DRUGS (2)
  1. THALOMID [Suspect]
     Indication: PROSTATE CANCER
     Dosage: 200 MG, QD TILL PSA PROGRESSION, ORAL
     Route: 048
     Dates: start: 20020128, end: 20031026
  2. LEUPROLIDE ACETATE [Suspect]
     Indication: PROSTATE CANCER
     Dosage: SEE IMAGE
     Route: 030
     Dates: start: 20020128

REACTIONS (2)
  - SPINAL OSTEOARTHRITIS [None]
  - SYNCOPE [None]
